FAERS Safety Report 17125309 (Version 3)
Quarter: 2024Q2

REPORT INFORMATION
  Report Type: Spontaneous
  Country: DE (occurrence: DE)
  Receive Date: 20191207
  Receipt Date: 20240516
  Transmission Date: 20240716
  Serious: Yes (Other)
  Sender: FDA-Public Use
  Company Number: DE-ZENTIVA-2019-ZT-000701

PATIENT
  Sex: Female
  Weight: 80 kg

DRUGS (2)
  1. DESOGESTREL\ETHINYL ESTRADIOL [Suspect]
     Active Substance: DESOGESTREL\ETHINYL ESTRADIOL
     Indication: Contraception
     Dosage: UNK
     Route: 065
  2. DIPYRONE [Suspect]
     Active Substance: DIPYRONE
     Indication: Product used for unknown indication
     Dosage: UNK
     Route: 065
     Dates: start: 201712

REACTIONS (4)
  - Tension [Recovering/Resolving]
  - Muscular weakness [Recovering/Resolving]
  - Limb discomfort [Recovering/Resolving]
  - Deep vein thrombosis [Recovering/Resolving]

NARRATIVE: CASE EVENT DATE: 20191007
